FAERS Safety Report 9210452 (Version 1)
Quarter: 2013Q2

REPORT INFORMATION
  Report Type: Spontaneous
  Country: FR (occurrence: FR)
  Receive Date: 20130404
  Receipt Date: 20130404
  Transmission Date: 20140414
  Serious: Yes (Other)
  Sender: FDA-Public Use
  Company Number: FR-JNJFOC-20130317313

PATIENT
  Age: 29 Year
  Sex: Female

DRUGS (4)
  1. REMICADE [Suspect]
     Indication: CROHN^S DISEASE
     Dosage: DOSING INTERVAL: DAY 1 AND DAY 15, FOLLOWED BY EVERY 4 WEEKS
     Route: 042
     Dates: start: 20120927
  2. REMICADE [Suspect]
     Indication: CROHN^S DISEASE
     Dosage: SIXTH DOSE
     Route: 042
     Dates: start: 20130301, end: 20130301
  3. POLARAMINE (DEXCHLORPHENIRAMINE) [Concomitant]
     Indication: PREMEDICATION
     Route: 065
  4. SOLU MEDROL [Concomitant]
     Indication: PREMEDICATION
     Route: 065

REACTIONS (7)
  - Infusion related reaction [Recovered/Resolved]
  - Dyspnoea [Recovered/Resolved]
  - Tachycardia [Recovered/Resolved]
  - Anxiety [Recovered/Resolved]
  - Feeling hot [Recovered/Resolved]
  - Skin discolouration [Recovered/Resolved]
  - VIIth nerve paralysis [Recovered/Resolved]
